FAERS Safety Report 8551293-0 (Version None)
Quarter: 2012Q3

REPORT INFORMATION
  Report Type: 
  Country: None (occurrence: None)
  Receive Date: 20120730
  Receipt Date: 20111215
  Transmission Date: 20120928
  Serious: No
  Sender: FDA-Public Use
  Company Number: US-ALLERGAN-1116463US

PATIENT
  Sex: Female

DRUGS (1)
  1. LATISSE [Suspect]
     Indication: PRODUCT USED FOR UNKNOWN INDICATION
     Dosage: 3 GTT, UNK
     Dates: start: 20111214

REACTIONS (6)
  - INCORRECT DOSE ADMINISTERED [None]
  - OCULAR HYPERAEMIA [None]
  - ABNORMAL DREAMS [None]
  - VISION BLURRED [None]
  - IRIS HYPERPIGMENTATION [None]
  - EYE PRURITUS [None]
